FAERS Safety Report 7809793-4 (Version None)
Quarter: 2011Q4

REPORT INFORMATION
  Report Type: 
  Country: None (occurrence: None)
  Receive Date: 20111012
  Receipt Date: 20110930
  Transmission Date: 20120403
  Serious: Yes (Hospitalization, Other)
  Sender: FDA-Public Use
  Company Number: US-BAYER-201031627NA

PATIENT
  Age: 17 Year
  Sex: Female
  Weight: 68 kg

DRUGS (6)
  1. LEXAPRO [Concomitant]
     Dosage: UNK
     Dates: start: 20070101, end: 20100101
  2. ALBUTEROL [Concomitant]
     Dosage: UNK
     Dates: end: 20080101
  3. YAZ [Suspect]
     Indication: MENSTRUATION IRREGULAR
  4. NORTRIPTYLINE HCL [Concomitant]
  5. YAZ [Suspect]
     Indication: CONTRACEPTION
     Dosage: UNK UNK, UNK
     Route: 048
     Dates: start: 20070701, end: 20090801
  6. MEDICAL SHAKE [Concomitant]
     Dosage: UNK
     Dates: start: 20081101

REACTIONS (6)
  - GALLBLADDER DISORDER [None]
  - CHOLELITHIASIS [None]
  - BILIARY DYSKINESIA [None]
  - CHOLECYSTITIS CHRONIC [None]
  - ABDOMINAL PAIN [None]
  - NAUSEA [None]
